FAERS Safety Report 19808763 (Version 1)
Quarter: 2021Q3

REPORT INFORMATION
  Report Type: Spontaneous
  Country: US (occurrence: US)
  Receive Date: 20210908
  Receipt Date: 20210908
  Transmission Date: 20211014
  Serious: No
  Sender: FDA-Public Use
  Company Number: None

PATIENT
  Age: 58 Year
  Sex: Female
  Weight: 82.8 kg

DRUGS (1)
  1. CEQUA [Suspect]
     Active Substance: CYCLOSPORINE
     Indication: DRY EYE
     Route: 061
     Dates: start: 20201114, end: 20210217

REACTIONS (4)
  - Pruritus [None]
  - Burning sensation [None]
  - Lacrimation increased [None]
  - Product substitution issue [None]

NARRATIVE: CASE EVENT DATE: 20201210
